FAERS Safety Report 24236922 (Version 1)
Quarter: 2024Q3

REPORT INFORMATION
  Report Type: Spontaneous
  Country: US (occurrence: US)
  Receive Date: 20240822
  Receipt Date: 20240822
  Transmission Date: 20241016
  Serious: No
  Sender: AUROBINDO
  Company Number: US-AUROBINDO-AUR-APL-2023-074599

PATIENT
  Age: 27 Year
  Sex: Female
  Weight: 56.699 kg

DRUGS (1)
  1. TERBINAFINE HYDROCHLORIDE [Suspect]
     Active Substance: TERBINAFINE HYDROCHLORIDE
     Indication: Antifungal treatment
     Dosage: 250 MILLIGRAM, TWO TIMES A DAY
     Route: 065

REACTIONS (3)
  - Product colour issue [Unknown]
  - Product physical issue [Unknown]
  - Wrong technique in product usage process [Unknown]
